FAERS Safety Report 15395405 (Version 1)
Quarter: 2018Q3

REPORT INFORMATION
  Report Type: Spontaneous
  Country: LB (occurrence: LB)
  Receive Date: 20180913
  Receipt Date: 20180913
  Transmission Date: 20181010
  Serious: Yes (Disabling)
  Sender: FDA-Public Use
  Company Number: None

PATIENT
  Age: 49 Year
  Sex: Male
  Weight: 89 kg

DRUGS (1)
  1. JANUVIA [Suspect]
     Active Substance: SITAGLIPTIN PHOSPHATE
     Indication: DIABETES MELLITUS
     Dosage: ?          OTHER STRENGTH:100MG;QUANTITY:1 TABLET(S);?
     Route: 048
     Dates: start: 20170926, end: 20180815

REACTIONS (1)
  - Amnesia [None]

NARRATIVE: CASE EVENT DATE: 20180913
